FAERS Safety Report 7516629-8 (Version None)
Quarter: 2011Q2

REPORT INFORMATION
  Report Type: 
  Country: None (occurrence: None)
  Receive Date: 20110428
  Receipt Date: 20100811
  Transmission Date: 20111010
  Serious: Yes (Other)
  Sender: FDA-Public Use
  Company Number: THYM-1001771

PATIENT
  Age: 36 Year
  Sex: Female

DRUGS (6)
  1. MYFORTIC [Concomitant]
  2. FLUCONAZOLE [Concomitant]
  3. CIPRO [Concomitant]
  4. THYMOGLOBULIN [Suspect]
     Indication: PROPHYLAXIS AGAINST TRANSPLANT REJECTION
     Dosage: 500, INTRAVENOUS
     Route: 042
     Dates: start: 20100611, end: 20100614
  5. SEPTRA DS [Concomitant]
  6. VALCYTE [Concomitant]

REACTIONS (1)
  - LEUKOPENIA [None]
